FAERS Safety Report 17295219 (Version 9)
Quarter: 2022Q2

REPORT INFORMATION
  Report Type: Spontaneous
  Country: US (occurrence: US)
  Receive Date: 20200121
  Receipt Date: 20220413
  Transmission Date: 20220721
  Serious: Yes (Hospitalization, Other)
  Sender: FDA-Public Use
  Company Number: US-PFIZER INC-2020024834

PATIENT
  Age: 54 Year
  Sex: Female

DRUGS (3)
  1. RAPAMUNE [Suspect]
     Active Substance: SIROLIMUS
     Indication: Prophylaxis against transplant rejection
     Dosage: 1 MG, 2X/DAY
     Route: 048
  2. RAPAMUNE [Suspect]
     Active Substance: SIROLIMUS
     Dosage: 2 MG, DAILY
     Route: 048
  3. RAPAMUNE [Suspect]
     Active Substance: SIROLIMUS
     Dosage: 2 MG, 1X/DAY
     Route: 048

REACTIONS (11)
  - Renal impairment [Unknown]
  - Hypertension [Unknown]
  - Renal failure [Unknown]
  - Heart transplant rejection [Unknown]
  - Blindness [Unknown]
  - Pneumonia [Unknown]
  - Drug hypersensitivity [Unknown]
  - Hypersensitivity [Unknown]
  - Off label use [Unknown]
  - Product use issue [Unknown]
  - Product dispensing error [Unknown]
